FAERS Safety Report 24790785 (Version 4)
Quarter: 2025Q1

REPORT INFORMATION
  Report Type: Spontaneous
  Country: DE (occurrence: DE)
  Receive Date: 20241230
  Receipt Date: 20250130
  Transmission Date: 20250409
  Serious: Yes (Hospitalization)
  Sender: PFIZER
  Company Number: DE-PFIZER INC-202400335020

PATIENT
  Age: 6 Year
  Sex: Female

DRUGS (1)
  1. CLINDAMYCIN HYDROCHLORIDE [Suspect]
     Active Substance: CLINDAMYCIN HYDROCHLORIDE
     Indication: Infection
     Dosage: 10 ML, 3X/DAY
     Route: 048
     Dates: start: 20241204, end: 20241208

REACTIONS (5)
  - Poor quality product administered [Recovered/Resolved]
  - Product odour abnormal [Recovered/Resolved]
  - Abdominal pain upper [Recovered/Resolved]
  - Yellow skin [Recovered/Resolved]
  - Toxicity to various agents [Recovered/Resolved]

NARRATIVE: CASE EVENT DATE: 20241208
